FAERS Safety Report 16095094 (Version 3)
Quarter: 2019Q1

REPORT INFORMATION
  Report Type: Spontaneous
  Country: JP (occurrence: JP)
  Receive Date: 20190320
  Receipt Date: 20190328
  Transmission Date: 20190418
  Serious: No
  Sender: FDA-Public Use
  Company Number: JP-DSJP-DSJ-2019-109539

PATIENT

DRUGS (1)
  1. LIXIANA OD TABLETS [Suspect]
     Active Substance: EDOXABAN TOSYLATE
     Dosage: UNK
     Route: 048

REACTIONS (2)
  - Laboratory test abnormal [Unknown]
  - Disseminated intravascular coagulation [None]
